FAERS Safety Report 24219414 (Version 1)
Quarter: 2024Q3

REPORT INFORMATION
  Report Type: Spontaneous
  Country: US (occurrence: US)
  Receive Date: 20240816
  Receipt Date: 20240816
  Transmission Date: 20241017
  Serious: No
  Sender: MYLAN
  Company Number: US-MYLANLABS-2024M1074050

PATIENT
  Age: 86 Year
  Sex: Female

DRUGS (1)
  1. WIXELA INHUB [Suspect]
     Active Substance: FLUTICASONE PROPIONATE\SALMETEROL XINAFOATE
     Indication: Chronic obstructive pulmonary disease
     Dosage: 250/50 MICROGRAM
     Route: 055
     Dates: start: 20240724

REACTIONS (6)
  - Back pain [Unknown]
  - Oral discomfort [Unknown]
  - Burning sensation [Unknown]
  - Dyspepsia [Unknown]
  - Dyspnoea [Unknown]
  - Dysphonia [Unknown]

NARRATIVE: CASE EVENT DATE: 20240801
